FAERS Safety Report 16728289 (Version 1)
Quarter: 2019Q3

REPORT INFORMATION
  Report Type: Spontaneous
  Country: DE (occurrence: DE)
  Receive Date: 20190822
  Receipt Date: 20190822
  Transmission Date: 20191005
  Serious: Yes (Other)
  Sender: FDA-Public Use
  Company Number: DE-ALEMBIC PHARMACUETICALS LIMITED-2019SCAL000569

PATIENT

DRUGS (3)
  1. SERTRALINE [SERTRALINE HYDROCHLORIDE] [Concomitant]
     Indication: MAJOR DEPRESSION
     Dosage: 100 MG, OD
  2. VENLAFAXINE [Suspect]
     Active Substance: VENLAFAXINE HYDROCHLORIDE
     Indication: DEPRESSION
     Dosage: 225 MILLIGRAM, OD
  3. MIRTAZAPINE. [Concomitant]
     Active Substance: MIRTAZAPINE
     Indication: MAJOR DEPRESSION
     Dosage: 30 MG, OD

REACTIONS (2)
  - Blood pressure increased [Unknown]
  - Drug intolerance [Unknown]
